FAERS Safety Report 4543256-7 (Version None)
Quarter: 2004Q4

REPORT INFORMATION
  Report Type: 
  Country: None (occurrence: None)
  Receive Date: 20041229
  Receipt Date: 20041220
  Transmission Date: 20050328
  Serious: Yes (Hospitalization)
  Sender: FDA-Public Use
  Company Number: K200401576

PATIENT
  Age: 79 Year
  Sex: Male

DRUGS (7)
  1. ALTACE [Suspect]
     Dosage: 10 MG, QD, ORAL
     Route: 048
     Dates: start: 20030101, end: 20040905
  2. ALTACE [Suspect]
     Dosage: 10 MG, QD, ORAL
     Route: 048
     Dates: start: 20040927
  3. GLICLAZIDE (GLICLAZIDE) TABLET, 2U [Suspect]
     Dosage: 1 U, BID, ORAL
     Route: 048
     Dates: start: 19990101, end: 20040905
  4. BISOPROLOL FUMARATE [Suspect]
     Dosage: 2.5 MG, QD QAM, ORAL
     Route: 048
     Dates: start: 20030101, end: 20040905
  5. BISOPROLOL FUMARATE [Suspect]
     Dosage: 2.5 MG, QD QAM, ORAL
     Route: 048
     Dates: start: 20040906
  6. ZOCOR [Suspect]
     Dosage: 20 MG, QD, ORAL
     Route: 048
     Dates: start: 19990101, end: 20040905
  7. ASPEGIC(ACETYLSALICYLATE LYSINE)POWDER(EXCEPT[DPO]),250MG [Suspect]
     Dosage: 250 MG, QD ORAL
     Dates: start: 19990101, end: 20040905

REACTIONS (8)
  - CHOLELITHIASIS [None]
  - DIVERTICULUM DUODENAL [None]
  - DUODENAL ULCER [None]
  - HELICOBACTER INFECTION [None]
  - PANCREATITIS ACUTE [None]
  - PEPTIC ULCER PERFORATION [None]
  - PYREXIA [None]
  - SEPTIC SHOCK [None]
